FAERS Safety Report 8397962-7 (Version None)
Quarter: 2012Q2

REPORT INFORMATION
  Report Type: 
  Country: None (occurrence: None)
  Receive Date: 20120531
  Receipt Date: 20120525
  Transmission Date: 20120825
  Serious: Yes (Death)
  Sender: FDA-Public Use
  Company Number: US-PFIZER INC-2012128262

PATIENT

DRUGS (2)
  1. TOVIAZ [Suspect]
     Dosage: UNK
  2. DETROL LA [Suspect]
     Dosage: UNK

REACTIONS (1)
  - DEATH [None]
